FAERS Safety Report 7619757-1 (Version None)
Quarter: 2011Q3

REPORT INFORMATION
  Report Type: 
  Country: None (occurrence: None)
  Receive Date: 20110719
  Receipt Date: 20110711
  Transmission Date: 20111222
  Serious: No
  Sender: FDA-Public Use
  Company Number: US-B.I. PHARMACEUTICALS,INC./RIDGEFIELD-2011-BP-17433BP

PATIENT
  Sex: Female

DRUGS (2)
  1. NEXIUM [Concomitant]
     Indication: IRRITABLE BOWEL SYNDROME
     Dosage: 40 MG
     Route: 048
  2. PRADAXA [Suspect]
     Indication: ATRIAL FIBRILLATION
     Dosage: 300 MG
     Route: 048
     Dates: start: 20110621

REACTIONS (4)
  - DYSPEPSIA [None]
  - PRODUCT ODOUR ABNORMAL [None]
  - DIARRHOEA [None]
  - PRODUCT TASTE ABNORMAL [None]
